FAERS Safety Report 5508526-4 (Version None)
Quarter: 2007Q4

REPORT INFORMATION
  Report Type: 
  Country: None (occurrence: None)
  Receive Date: 20071031
  Receipt Date: 20070705
  Transmission Date: 20080405
  Serious: No
  Sender: FDA-Public Use
  Company Number: 2007PV033097

PATIENT
  Age: 51 Year
  Sex: Male

DRUGS (4)
  1. SYMLIN [Suspect]
     Indication: TYPE 2 DIABETES MELLITUS
     Dosage: 120 MCG;SC ; 60 MCG;SC
     Route: 058
     Dates: start: 20070611, end: 20070613
  2. SYMLIN [Suspect]
     Indication: TYPE 2 DIABETES MELLITUS
     Dosage: 120 MCG;SC ; 60 MCG;SC
     Route: 058
     Dates: start: 20070614
  3. NOVOLOG [Concomitant]
  4. LANTUS [Concomitant]

REACTIONS (3)
  - BLOOD GLUCOSE DECREASED [None]
  - EARLY SATIETY [None]
  - ENERGY INCREASED [None]
